FAERS Safety Report 8128531-1 (Version None)
Quarter: 2012Q1

REPORT INFORMATION
  Report Type: 
  Country: None (occurrence: None)
  Receive Date: 20120210
  Receipt Date: 20111201
  Transmission Date: 20120608
  Serious: No
  Sender: FDA-Public Use
  Company Number: US-BRISTOL-MYERS SQUIBB COMPANY-16263311

PATIENT
  Age: 47 Year
  Sex: Female
  Weight: 54 kg

DRUGS (5)
  1. ORENCIA [Suspect]
  2. ZOCOR [Concomitant]
  3. PLAQUENIL [Concomitant]
  4. SULFASALAZINE [Concomitant]
  5. MOBIC [Concomitant]

REACTIONS (1)
  - MOUTH ULCERATION [None]
